FAERS Safety Report 11640405 (Version 1)
Quarter: 2015Q4

REPORT INFORMATION
  Report Type: Report from Study
  Country: EG (occurrence: EG)
  Receive Date: 20151019
  Receipt Date: 20151019
  Transmission Date: 20160304
  Serious: Yes (Death, Hospitalization)
  Sender: FDA-Public Use
  Company Number: EG-SA-2015SA162352

PATIENT
  Age: 19 Year
  Sex: Female

DRUGS (6)
  1. HEPARIN [Suspect]
     Active Substance: HEPARIN SODIUM
     Indication: ANTICOAGULANT THERAPY
     Route: 058
  2. STREPTOKINASE [Suspect]
     Active Substance: STREPTOKINASE
     Indication: FIBRINOLYSIS
     Dosage: 0.15 MILLION IU/H WAS GIVE AND MAINTAINED ACCORDING TO STANDARD PROTOCOL ({24 HRS)
     Route: 042
  3. MIDAZOLAM [Suspect]
     Active Substance: MIDAZOLAM\MIDAZOLAM HYDROCHLORIDE
     Indication: SEDATION
     Dosage: 1-3 MG
     Route: 042
  4. ENOXAPARIN SODIUM. [Suspect]
     Active Substance: ENOXAPARIN SODIUM
     Indication: ANTICOAGULANT THERAPY
     Route: 058
  5. LIDOCAINE. [Suspect]
     Active Substance: LIDOCAINE
     Indication: ANAESTHESIA
     Dosage: 10% LIDOCAINE, ORPHARYNGEAL ANAESTHESIA
     Route: 065
  6. STREPTOKINASE [Suspect]
     Active Substance: STREPTOKINASE
     Indication: FIBRINOLYSIS
     Dosage: CONVENTIONAL PROTOCOL: 0.25 MILLION IU OVER 30 MIN
     Route: 042

REACTIONS (2)
  - Exposure during pregnancy [Unknown]
  - Cardiogenic shock [Fatal]
